FAERS Safety Report 10274618 (Version 2)
Quarter: 2014Q3

REPORT INFORMATION
  Report Type: Spontaneous
  Country: US (occurrence: US)
  Receive Date: 20140702
  Receipt Date: 20140715
  Transmission Date: 20150326
  Serious: Yes (Other)
  Sender: FDA-Public Use
  Company Number: US-TEVA-491373USA

PATIENT
  Age: 46 Year
  Sex: Male

DRUGS (1)
  1. COPAXONE [Suspect]
     Active Substance: GLATIRAMER ACETATE
     Indication: MULTIPLE SCLEROSIS
     Dates: start: 20140326

REACTIONS (5)
  - Diarrhoea [Unknown]
  - Dizziness [Unknown]
  - Pharyngeal oedema [Unknown]
  - Limb discomfort [Unknown]
  - Flushing [Unknown]

NARRATIVE: CASE EVENT DATE: 20140623
